FAERS Safety Report 8763673 (Version 1)
Quarter: 2012Q4

REPORT INFORMATION
  Report Type: 
  Country: ES (occurrence: ES)
  Receive Date: 20120828
  Receipt Date: 20120828
  Transmission Date: 20130627
  Serious: Yes (Hospitalization, Other)
  Sender: FDA-Public Use
  Company Number: ES-ROXANE LABORATORIES, INC.-2012-RO-01742RO

PATIENT
  Age: 83 Year
  Sex: Male

DRUGS (7)
  1. CITALOPRAM [Suspect]
     Indication: FATIGUE
     Dosage: 20 mg
  2. CITALOPRAM [Suspect]
     Indication: ASTHENIA
  3. FUROSEMIDE [Suspect]
  4. BISOPROLOL [Suspect]
  5. ACETYLSALICYLIC ACID [Suspect]
  6. CHLORPROMAZINE [Suspect]
  7. INSULIN GLARGINE [Suspect]

REACTIONS (3)
  - Hepatotoxicity [Recovered/Resolved]
  - Fatigue [Unknown]
  - Asthenia [Unknown]
